FAERS Safety Report 8430376-X (Version None)
Quarter: 2012Q2

REPORT INFORMATION
  Report Type: 
  Country: None (occurrence: None)
  Receive Date: 20120612
  Receipt Date: 20120604
  Transmission Date: 20120825
  Serious: Yes (Hospitalization)
  Sender: FDA-Public Use
  Company Number: US-ABBOTT-12P-163-0934197-00

PATIENT
  Age: 66 Year
  Sex: Female

DRUGS (7)
  1. AMBIEN [Concomitant]
     Indication: INSOMNIA
     Dosage: 10MG AT BEDTIME
  2. ENTOCORT EC [Concomitant]
     Indication: PRODUCT USED FOR UNKNOWN INDICATION
  3. OMETRAVOLE DR [Concomitant]
     Indication: DYSPNOEA
  4. OMEPRAZOLE [Concomitant]
     Indication: GASTROINTESTINAL DISORDER
  5. HUMIRA [Suspect]
     Indication: CROHN'S DISEASE
  6. HUMIRA [Suspect]
     Dosage: QOW
     Dates: start: 20120501, end: 20120501
  7. LORTAB [Concomitant]
     Indication: PAIN
     Dosage: 7.5/500MG

REACTIONS (11)
  - BLOOD SODIUM DECREASED [None]
  - BREAST PAIN [None]
  - FLUID RETENTION [None]
  - DEHYDRATION [None]
  - GAIT DISTURBANCE [None]
  - RHEUMATOID ARTHRITIS [None]
  - HERPES ZOSTER [None]
  - OEDEMA PERIPHERAL [None]
  - FALL [None]
  - BLOOD POTASSIUM DECREASED [None]
  - PAIN [None]
